FAERS Safety Report 8142445-2 (Version None)
Quarter: 2012Q1

REPORT INFORMATION
  Report Type: 
  Country: None (occurrence: None)
  Receive Date: 20120216
  Receipt Date: 20120209
  Transmission Date: 20120608
  Serious: Yes (Other)
  Sender: FDA-Public Use
  Company Number: JP-JNJFOC-20120104826

PATIENT
  Sex: Female
  Weight: 54 kg

DRUGS (4)
  1. SIMPONI [Suspect]
     Route: 058
     Dates: start: 20111028, end: 20111028
  2. METHOTREXATE [Suspect]
     Indication: PRODUCT USED FOR UNKNOWN INDICATION
     Route: 048
     Dates: start: 20111222, end: 20111223
  3. SIMPONI [Suspect]
     Route: 058
     Dates: start: 20111129
  4. SIMPONI [Suspect]
     Indication: RHEUMATOID ARTHRITIS
     Route: 058
     Dates: start: 20120112

REACTIONS (1)
  - ERYSIPELAS [None]
